FAERS Safety Report 4996429-3 (Version None)
Quarter: 2006Q2

REPORT INFORMATION
  Report Type: 
  Country: None (occurrence: None)
  Receive Date: 20060505
  Receipt Date: 20060215
  Transmission Date: 20061013
  Serious: Yes (Hospitalization)
  Sender: FDA-Public Use
  Company Number: 2006016665

PATIENT

DRUGS (2)
  1. DEPO-MEDROL [Suspect]
     Indication: ILL-DEFINED DISORDER
  2. LIDOCAINE [Suspect]
     Indication: ILL-DEFINED DISORDER

REACTIONS (7)
  - BLOOD PRESSURE INCREASED [None]
  - DIZZINESS [None]
  - MALAISE [None]
  - PALLOR [None]
  - SYNCOPE [None]
  - TACHYCARDIA [None]
  - VOMITING [None]
